FAERS Safety Report 8221274-5 (Version None)
Quarter: 2012Q1

REPORT INFORMATION
  Report Type: 
  Country: None (occurrence: None)
  Receive Date: 20120320
  Receipt Date: 20120314
  Transmission Date: 20120608
  Serious: Yes (Hospitalization)
  Sender: FDA-Public Use
  Company Number: PHHY2012JP022465

PATIENT

DRUGS (5)
  1. RITALIN [Suspect]
     Dosage: 10 MG, QD
  2. ZOLPIDEM [Concomitant]
     Route: 048
  3. THYROID TAB [Concomitant]
     Route: 048
  4. PARATHYROID HORMONES [Concomitant]
     Route: 048
  5. RITALIN [Suspect]
     Dosage: 10 MG, BID
     Route: 048

REACTIONS (3)
  - ABNORMAL BEHAVIOUR [None]
  - FALL [None]
  - MEMORY IMPAIRMENT [None]
